FAERS Safety Report 6179593-2 (Version None)
Quarter: 2009Q2

REPORT INFORMATION
  Report Type: 
  Country: None (occurrence: None)
  Receive Date: 20090505
  Receipt Date: 20090427
  Transmission Date: 20091009
  Serious: Yes (Other)
  Sender: FDA-Public Use
  Company Number: US-AVENTIS-200912852US

PATIENT
  Sex: Male
  Weight: 99.1 kg

DRUGS (31)
  1. APIDRA [Suspect]
     Dosage: DOSE: VIA PUMP
     Route: 058
  2. APIDRA [Suspect]
     Dosage: DOSE: UNK
     Route: 058
  3. MULTI-VITAMINS [Concomitant]
     Dosage: DOSE: UNK
  4. ASCORBIC ACID [Concomitant]
  5. VIT D [Concomitant]
  6. CITRUCEL [Concomitant]
     Dosage: DOSE: UNK
  7. COMPAZINE [Concomitant]
     Dosage: DOSE: 10 MG THREE TIMES A DAY PRN
  8. LORTAB [Concomitant]
     Dosage: DOSE: UNK
  9. SPIRIVA [Concomitant]
     Dosage: DOSE: UNK
     Route: 055
  10. AVAPRO [Concomitant]
  11. ALLEGRA [Concomitant]
  12. STOOL SOFTENER [Concomitant]
     Dosage: DOSE: UNK
  13. LAXATIVES [Concomitant]
     Dosage: DOSE QUANTITY: 2
  14. GLYCOLAX [Concomitant]
     Dosage: DOSE: UNK
  15. CREON [Concomitant]
     Dosage: DOSE: UNK
  16. CYMBALTA [Concomitant]
  17. ZEGERID [Concomitant]
     Dosage: DOSE: 40/1100
  18. PLAVIX [Concomitant]
  19. PROVIGIL [Concomitant]
  20. CIALIS [Concomitant]
  21. LIPITOR [Concomitant]
  22. DOMPERIDONE [Concomitant]
     Dosage: DOSE: 10MG: 1 LUNCH, 2 DINNER, 1 AT BEDTIME
  23. COQ10 [Concomitant]
  24. GLUCOSAMINE + CHONDROITIN [Concomitant]
     Dosage: DOSE: 500/400
  25. FOSAMAX [Concomitant]
  26. ZICAM [Concomitant]
     Dosage: DOSE: UNK
  27. LURICUL VG [Concomitant]
     Dosage: DOSE: UNK
  28. TESTOSTERONE CYPIONATE [Concomitant]
     Dosage: DOSE: 1.5 ML OF 200MG/ML
  29. SENNA [Concomitant]
     Dosage: DOSE: 2 X A DAY
  30. NEURONTIN [Concomitant]
     Dosage: DOSE: 300 MG/DAY FOR 5 D, 2 X/DAY FOR 5 DAYS, THE 3 X/D, NOW 2, 3 X/D
  31. LYRICA [Concomitant]
     Dosage: DOSE: UNK

REACTIONS (5)
  - BLOOD GLUCOSE INCREASED [None]
  - DRUG INEFFECTIVE [None]
  - KETOSIS [None]
  - OVERDOSE [None]
  - PAIN IN EXTREMITY [None]
